FAERS Safety Report 10531485 (Version 1)
Quarter: 2014Q4

REPORT INFORMATION
  Report Type: Report from Study
  Country: AR (occurrence: AR)
  Receive Date: 20141021
  Receipt Date: 20141021
  Transmission Date: 20150529
  Serious: Yes (Other)
  Sender: FDA-Public Use
  Company Number: PHHY2014AR136344

PATIENT
  Age: 70 Year
  Sex: Female

DRUGS (1)
  1. DIOVAN [Suspect]
     Active Substance: VALSARTAN
     Indication: HYPERTENSION
     Dosage: 1 DF (160), QD
     Route: 048
     Dates: end: 20141012

REACTIONS (5)
  - Dizziness [Recovering/Resolving]
  - Vision blurred [Recovering/Resolving]
  - Blood pressure decreased [Recovering/Resolving]
  - Cataract [Recovered/Resolved]
  - Blood pressure increased [Recovering/Resolving]

NARRATIVE: CASE EVENT DATE: 201312
